FAERS Safety Report 16516356 (Version 1)
Quarter: 2019Q3

REPORT INFORMATION
  Report Type: Spontaneous
  Country: US (occurrence: US)
  Receive Date: 20190702
  Receipt Date: 20190702
  Transmission Date: 20191004
  Serious: No
  Sender: FDA-Public Use
  Company Number: US-PFM-2018-14973

PATIENT

DRUGS (2)
  1. HEMANGEOL [Suspect]
     Active Substance: PROPRANOLOL HYDROCHLORIDE
     Indication: PRODUCT USED FOR UNKNOWN INDICATION
     Dosage: 1.5 ML, BID (2/DAY)
     Route: 048
     Dates: start: 20181115
  2. HEMANGEOL [Suspect]
     Active Substance: PROPRANOLOL HYDROCHLORIDE
     Dosage: 2.2 ML, BID (2/DAY)
     Route: 048

REACTIONS (3)
  - Diarrhoea [Recovering/Resolving]
  - Product dose omission [Unknown]
  - Sleep disorder [Recovering/Resolving]
